FAERS Safety Report 7298400-8 (Version None)
Quarter: 2011Q1

REPORT INFORMATION
  Report Type: 
  Country: None (occurrence: None)
  Receive Date: 20110217
  Receipt Date: 20100730
  Transmission Date: 20110831
  Serious: No
  Sender: FDA-Public Use
  Company Number: US-PFIZER INC-2010042018

PATIENT
  Sex: Female
  Weight: 56.689 kg

DRUGS (6)
  1. OMEPRAZOLE [Concomitant]
     Dosage: 20 MG, UNK
  2. XALATAN [Suspect]
     Indication: GLAUCOMA
     Dosage: 1 DROP TO BOTH EYES
     Route: 047
     Dates: start: 20100302, end: 20100607
  3. KLONOPIN [Concomitant]
     Dosage: UNK
  4. LIPITOR [Concomitant]
     Indication: BLOOD CHOLESTEROL INCREASED
     Dosage: UNK
  5. COLESTID [Concomitant]
     Dosage: 1 MG, DAILY
  6. FIBERCON [Concomitant]
     Dosage: UNK

REACTIONS (5)
  - EYE PRURITUS [None]
  - OCULAR HYPERAEMIA [None]
  - VISION BLURRED [None]
  - EYE IRRITATION [None]
  - FOREIGN BODY IN EYE [None]
